FAERS Safety Report 16320597 (Version 1)
Quarter: 2019Q2

REPORT INFORMATION
  Report Type: Spontaneous
  Country: US (occurrence: US)
  Receive Date: 20190516
  Receipt Date: 20190516
  Transmission Date: 20190711
  Serious: No
  Sender: FDA-Public Use
  Company Number: US-LNK INTERNATIONAL, INC.-2067069

PATIENT
  Age: 25 Year
  Sex: Female

DRUGS (1)
  1. ACETAMINOPHEN 250MG, ASPIRIN 250MG, CAFFEINE 65MG FILM COATED WHITE CA [Suspect]
     Active Substance: ACETAMINOPHEN\ASPIRIN\CAFFEINE
     Indication: MIGRAINE
     Dates: start: 20190407, end: 20190409

REACTIONS (3)
  - Throat tightness [None]
  - Peripheral swelling [None]
  - Rash generalised [None]
